FAERS Safety Report 11067356 (Version 2)
Quarter: 2015Q2

REPORT INFORMATION
  Report Type: Spontaneous
  Country: US (occurrence: US)
  Receive Date: 20150426
  Receipt Date: 20150504
  Transmission Date: 20150821
  Serious: Yes (Other)
  Sender: FDA-Public Use
  Company Number: US-PFIZER INC-2015133686

PATIENT
  Sex: Female

DRUGS (3)
  1. LATANOPROST. [Suspect]
     Active Substance: LATANOPROST
     Indication: GLAUCOMA
     Dosage: PROMINENTLY IN THE LEFT EYE
  2. LATANOPROST. [Suspect]
     Active Substance: LATANOPROST
     Dosage: IN BOTH EYES
     Dates: start: 201410
  3. FAMOTIDINE. [Concomitant]
     Active Substance: FAMOTIDINE
     Dosage: UNK

REACTIONS (3)
  - Condition aggravated [Unknown]
  - Eye disorder [Unknown]
  - Intentional product misuse [Unknown]
